FAERS Safety Report 5225449-9 (Version None)
Quarter: 2006Q4

REPORT INFORMATION
  Report Type: 
  Country: None (occurrence: None)
  Receive Date: 20061201
  Receipt Date: 20061109
  Transmission Date: 20070319
  Serious: No
  Sender: FDA-Public Use
  Company Number: US200608004544

PATIENT
  Age: 71 Year
  Sex: Female

DRUGS (4)
  1. FORTEO [Suspect]
     Indication: OSTEOPOROSIS
     Dates: start: 20060601
  2. CYMBALTA [Suspect]
     Indication: HERPES ZOSTER
     Dosage: SEE IMAGE
     Dates: start: 20060421, end: 20060722
  3. CYMBALTA [Suspect]
     Indication: HERPES ZOSTER
     Dosage: SEE IMAGE
     Dates: end: 20060722
  4. ASPIRIN [Concomitant]

REACTIONS (2)
  - CONTUSION [None]
  - INJECTION SITE BRUISING [None]
